FAERS Safety Report 4498635-3 (Version None)
Quarter: 2004Q4

REPORT INFORMATION
  Report Type: 
  Country: None (occurrence: None)
  Receive Date: 20041108
  Receipt Date: 20041022
  Transmission Date: 20050328
  Serious: Yes (Other)
  Sender: FDA-Public Use
  Company Number: 209891

PATIENT
  Age: 67 Year
  Sex: Male
  Weight: 119.7 kg

DRUGS (1)
  1. AVASTIN [Suspect]
     Indication: GASTROINTESTINAL CARCINOMA
     Dosage: 570 MG, Q2W, INTRAVENOUS
     Route: 042
     Dates: start: 20040801

REACTIONS (1)
  - BONE NEOPLASM [None]
